FAERS Safety Report 4640736-0 (Version None)
Quarter: 2005Q2

REPORT INFORMATION
  Report Type: 
  Country: None (occurrence: None)
  Receive Date: 20050419
  Receipt Date: 20050401
  Transmission Date: 20051028
  Serious: Yes (Death)
  Sender: FDA-Public Use
  Company Number: 10791

PATIENT
  Age: 24 Month
  Sex: Male

DRUGS (4)
  1. VINCRISTINE [Suspect]
     Dosage: 1.5 MG/M2 PER_CYCLE IV
     Route: 042
  2. DEXAMETHASONE [Suspect]
     Dosage: 6.5 MG/M2 PER_CYCLE PO
     Route: 048
  3. METHOTREXATE [Suspect]
     Dosage: 25 MG/M2 PER_CYCLE PO
     Route: 048
  4. THIOGUANINE [Suspect]
     Indication: LYMPHOCYTIC LEUKAEMIA
     Dosage: 40 MG/M2 PER_CYCLE PO
     Route: 048

REACTIONS (12)
  - ADENOVIRAL HEPATITIS [None]
  - ASCITES [None]
  - COAGULOPATHY [None]
  - DIARRHOEA [None]
  - EPIDERMAL NECROSIS [None]
  - HEPATIC ENCEPHALOPATHY [None]
  - HEPATIC FAILURE [None]
  - HEPATOSPLENOMEGALY [None]
  - PANCYTOPENIA [None]
  - PRODUCTIVE COUGH [None]
  - RASH VESICULAR [None]
  - VENOOCCLUSIVE LIVER DISEASE [None]
